FAERS Safety Report 19597379 (Version 1)
Quarter: 2021Q3

REPORT INFORMATION
  Report Type: Report from Study
  Country: AU (occurrence: AU)
  Receive Date: 20210722
  Receipt Date: 20210722
  Transmission Date: 20211014
  Serious: Yes (Death, Hospitalization, Other)
  Sender: FDA-Public Use
  Company Number: NVSC2021AU165662

PATIENT
  Sex: Female

DRUGS (1)
  1. GLIVEC [Suspect]
     Active Substance: IMATINIB MESYLATE
     Indication: ACUTE LYMPHOCYTIC LEUKAEMIA
     Dosage: 600 MG, QD
     Route: 048
     Dates: start: 2008

REACTIONS (6)
  - Psoas abscess [Unknown]
  - Death [Fatal]
  - Renal impairment [Unknown]
  - Arthritis bacterial [Unknown]
  - Staphylococcal sepsis [Unknown]
  - Lower respiratory tract infection [Unknown]
